FAERS Safety Report 6212341-6 (Version None)
Quarter: 2009Q2

REPORT INFORMATION
  Report Type: 
  Country: None (occurrence: None)
  Receive Date: 20090529
  Receipt Date: 20090525
  Transmission Date: 20091009
  Serious: Yes (Other)
  Sender: FDA-Public Use
  Company Number: 280620

PATIENT
  Age: 40 Year
  Sex: Female

DRUGS (10)
  1. FENTANYL [Suspect]
     Indication: INDUCTION OF ANAESTHESIA
     Dosage: 100 MCG, INTRAVENOUS
     Route: 042
  2. PAROXETINE HCL [Suspect]
     Indication: DEPRESSION
  3. THIOPENTAL SODIUM [Concomitant]
  4. VECURONIUM BROMIDE [Concomitant]
  5. SEVOFLURANE [Concomitant]
  6. (OXYGEN) [Concomitant]
  7. (NEOSTIGMINE) [Concomitant]
  8. ATROPINE [Concomitant]
  9. DICLOFENAC SODIUM [Concomitant]
  10. NITROUS OXIDE [Concomitant]

REACTIONS (7)
  - DRUG INTERACTION [None]
  - HAEMODYNAMIC INSTABILITY [None]
  - NYSTAGMUS [None]
  - PROCEDURAL COMPLICATION [None]
  - PUPILLARY REFLEX IMPAIRED [None]
  - PUPILS UNEQUAL [None]
  - SEROTONIN SYNDROME [None]
